FAERS Safety Report 23772885 (Version 3)
Quarter: 2024Q2

REPORT INFORMATION
  Report Type: Report from Study
  Country: US (occurrence: US)
  Receive Date: 20240423
  Receipt Date: 20240625
  Transmission Date: 20240716
  Serious: Yes (Hospitalization, Other)
  Sender: FDA-Public Use
  Company Number: US-INSMED-2022-00580-USAA

PATIENT
  Sex: Female
  Weight: 45 kg

DRUGS (3)
  1. ARIKAYCE [Suspect]
     Active Substance: AMIKACIN
     Indication: Mycobacterium avium complex infection
     Dosage: 590 MILLIGRAM, QD
     Route: 055
     Dates: start: 20220224, end: 2022
  2. ARIKAYCE [Suspect]
     Active Substance: AMIKACIN
     Dosage: UNK, QD
     Route: 055
     Dates: start: 2022, end: 2023
  3. ARIKAYCE [Suspect]
     Active Substance: AMIKACIN
     Dosage: 590 MILLIGRAM, QD
     Route: 055
     Dates: end: 2024

REACTIONS (10)
  - Hospitalisation [Unknown]
  - Lower limb fracture [Recovering/Resolving]
  - Fall [Recovering/Resolving]
  - Rib fracture [Unknown]
  - Haemoptysis [Recovered/Resolved]
  - Drug ineffective [Unknown]
  - Therapy interrupted [Unknown]
  - Product dose omission issue [Unknown]
  - Incorrect dose administered [Unknown]
  - Device issue [Unknown]

NARRATIVE: CASE EVENT DATE: 20220101
